FAERS Safety Report 9687154 (Version 2)
Quarter: 2014Q2

REPORT INFORMATION
  Report Type: Spontaneous
  Country: IE (occurrence: IE)
  Receive Date: 20131113
  Receipt Date: 20140415
  Transmission Date: 20141212
  Serious: Yes (Hospitalization, Other)
  Sender: FDA-Public Use
  Company Number: IE-ASTRAZENECA-2013SE81604

PATIENT
  Age: 646 Day
  Sex: Male

DRUGS (26)
  1. SYNAGIS [Suspect]
     Indication: LUNG DISORDER
     Route: 030
  2. SYNAGIS [Suspect]
     Indication: LUNG DISORDER
     Dosage: 2ND DOSE AT DAY 21, THEN MONTHLY 15 MG/KG
     Route: 030
     Dates: start: 20121114, end: 20121114
  3. SYNAGIS [Suspect]
     Indication: LUNG DISORDER
     Route: 030
     Dates: start: 20121212, end: 20121212
  4. SYNAGIS [Suspect]
     Indication: LUNG DISORDER
     Route: 030
     Dates: start: 20130109, end: 20130109
  5. STEROID [Concomitant]
     Indication: PRODUCT USED FOR UNKNOWN INDICATION
  6. RANITIDINE [Concomitant]
     Indication: PRODUCT USED FOR UNKNOWN INDICATION
     Route: 050
  7. MOTILIUM [Concomitant]
     Indication: PRODUCT USED FOR UNKNOWN INDICATION
     Route: 050
  8. TRIMETHOPRIM [Concomitant]
     Indication: PRODUCT USED FOR UNKNOWN INDICATION
     Dosage: GJ, ONE DAY, 20 MG, NCE DAILY AT NIGHT
     Route: 050
  9. MOVICOL PEDIATRICO [Concomitant]
     Indication: PRODUCT USED FOR UNKNOWN INDICATION
     Dosage: GJ, 1 DF EVERY DAY
     Route: 050
  10. VITAMIN D3 [Concomitant]
     Indication: PRODUCT USED FOR UNKNOWN INDICATION
     Dosage: GJ, 200 DF, EVERY DAY
     Route: 050
  11. NACL [Concomitant]
     Indication: PRODUCT USED FOR UNKNOWN INDICATION
     Dosage: 2ML NEBS, FOUR TIMES A DAY
     Route: 050
  12. NACL [Concomitant]
     Indication: PRODUCT USED FOR UNKNOWN INDICATION
     Route: 050
  13. NACL [Concomitant]
     Indication: PRODUCT USED FOR UNKNOWN INDICATION
     Dosage: 3ML NEBS
  14. SILDENAFIL [Concomitant]
     Indication: PRODUCT USED FOR UNKNOWN INDICATION
     Route: 050
  15. SILDENAFIL [Concomitant]
     Indication: PRODUCT USED FOR UNKNOWN INDICATION
     Dosage: INCREASED TO 15MMH
  16. BOSENTAN [Concomitant]
     Indication: PRODUCT USED FOR UNKNOWN INDICATION
     Route: 050
  17. GALFER [Concomitant]
     Indication: PRODUCT USED FOR UNKNOWN INDICATION
     Route: 050
  18. HYDROCORTISONE [Concomitant]
     Indication: PRODUCT USED FOR UNKNOWN INDICATION
     Dosage: ON WEDNESDAY AND SATURDAY,EVERY DAY
     Route: 062
  19. HYDROCORTISONE [Concomitant]
     Indication: PRODUCT USED FOR UNKNOWN INDICATION
     Route: 050
  20. PARACETAMOL [Concomitant]
     Indication: PRODUCT USED FOR UNKNOWN INDICATION
     Route: 050
  21. GLYCERINE [Concomitant]
     Indication: PRODUCT USED FOR UNKNOWN INDICATION
  22. L-THYROXINE [Concomitant]
     Indication: PRODUCT USED FOR UNKNOWN INDICATION
     Dosage: 62.5/50 MCG ALTERNATE DAYS VIA GJ
  23. GENOTROPIN [Concomitant]
     Indication: PRODUCT USED FOR UNKNOWN INDICATION
     Route: 058
  24. FUROSEMIDE [Concomitant]
     Indication: PRODUCT USED FOR UNKNOWN INDICATION
     Dosage: TWO TIMES A DAY
  25. SPIRONOLACTONE [Concomitant]
     Indication: PRODUCT USED FOR UNKNOWN INDICATION
     Dosage: EVERY DAY
  26. SMA+PROTIFAN [Concomitant]
     Indication: PRODUCT USED FOR UNKNOWN INDICATION
     Dosage: 50 MLS/HOUR, 19 HOURS/DAY, 102MLS/KG/DAY

REACTIONS (6)
  - Respiratory rate increased [Unknown]
  - Hypothalamo-pituitary disorder [Unknown]
  - Vomiting [Unknown]
  - Skin discolouration [Unknown]
  - Heart rate increased [Unknown]
  - Peripheral coldness [Unknown]
